FAERS Safety Report 4843869-9 (Version None)
Quarter: 2005Q4

REPORT INFORMATION
  Report Type: 
  Country: None (occurrence: None)
  Receive Date: 20051129
  Receipt Date: 20051121
  Transmission Date: 20060501
  Serious: Yes (Life-Threatening)
  Sender: FDA-Public Use
  Company Number: DE-2005-024500

PATIENT

DRUGS (2)
  1. ULTRAVIST 370 (IOPROMIDE) SOLUTION [Suspect]
     Dosage: 1 DOSE
     Dates: start: 20051101, end: 20051101
  2. ULTRAVIST 370 (IOPROMIDE) SOLUTION [Suspect]

REACTIONS (2)
  - CARDIAC ARREST [None]
  - HYPERSENSITIVITY [None]
